FAERS Safety Report 16242814 (Version 1)
Quarter: 2019Q2

REPORT INFORMATION
  Report Type: Other
  Country: CA (occurrence: CA)
  Receive Date: 20190426
  Receipt Date: 20190426
  Transmission Date: 20190711
  Serious: Yes (Hospitalization, Other)
  Sender: FDA-Public Use
  Company Number: CA-APOTEX-2019AP012275

PATIENT
  Age: 66 Year
  Sex: Male

DRUGS (16)
  1. ACETAMINOPHEN. [Concomitant]
     Active Substance: ACETAMINOPHEN
     Indication: ABDOMINAL PAIN
     Route: 065
  2. COD-LIVER OIL [Concomitant]
     Active Substance: COD LIVER OIL
     Indication: ROUTINE HEALTH MAINTENANCE
     Route: 065
  3. VITAMIN C [Concomitant]
     Active Substance: ASCORBIC ACID
     Indication: ROUTINE HEALTH MAINTENANCE
     Route: 065
  4. TICILIMUMAB [Suspect]
     Active Substance: TREMELIMUMAB
     Indication: PANCREATIC CARCINOMA
     Dosage: 75 MG, UNK (1 EVERY 4 WEEKS)
     Route: 042
  5. ACETIC ACID. [Concomitant]
     Active Substance: ACETIC ACID
     Indication: ROUTINE HEALTH MAINTENANCE
     Route: 065
  6. GEMCITABINE [Suspect]
     Active Substance: GEMCITABINE\GEMCITABINE HYDROCHLORIDE
     Indication: PANCREATIC CARCINOMA
     Dosage: 1510 MG, UNK (3 EVERY 28 DAYS)
     Route: 042
  7. ABRAXANE [Suspect]
     Active Substance: PACLITAXEL
     Indication: PANCREATIC CARCINOMA
     Dosage: 188.75 MG, UNK (3 EVERY 28 DAYS)
     Route: 042
  8. DURVALUMAB. [Suspect]
     Active Substance: DURVALUMAB
     Indication: PANCREATIC CARCINOMA
     Dosage: 1500 MG, UNK (1 EVERY 4 WEEKS)
     Route: 042
  9. KEFLEX [Concomitant]
     Active Substance: CEPHALEXIN
     Indication: INFECTION
     Route: 065
  10. ASCORBIC ACID. [Concomitant]
     Active Substance: ASCORBIC ACID
     Indication: ROUTINE HEALTH MAINTENANCE
     Route: 065
  11. GABAPENTIN. [Concomitant]
     Active Substance: GABAPENTIN
     Indication: PARAESTHESIA
     Route: 065
  12. LEVOTHYROXINE. [Concomitant]
     Active Substance: LEVOTHYROXINE
     Indication: HYPOTHYROIDISM
     Route: 065
  13. SILVER COLLOIDAL [Concomitant]
     Active Substance: SILVER
     Indication: ROUTINE HEALTH MAINTENANCE
     Route: 065
  14. MULTIVITAMINS                      /00116001/ [Concomitant]
     Active Substance: VITAMINS
     Indication: ROUTINE HEALTH MAINTENANCE
     Route: 065
  15. VITAMIN B [Concomitant]
     Active Substance: VITAMIN B
     Indication: ROUTINE HEALTH MAINTENANCE
     Route: 065
  16. CANNABIS [Concomitant]
     Active Substance: CANNABIS SATIVA SUBSP. INDICA TOP
     Indication: ROUTINE HEALTH MAINTENANCE
     Route: 065

REACTIONS (2)
  - Anaemia [Not Recovered/Not Resolved]
  - Upper gastrointestinal haemorrhage [Not Recovered/Not Resolved]
